FAERS Safety Report 17661577 (Version 1)
Quarter: 2020Q2

REPORT INFORMATION
  Report Type: Spontaneous
  Country: US (occurrence: US)
  Receive Date: 20200413
  Receipt Date: 20200413
  Transmission Date: 20200713
  Serious: Yes (Life-Threatening, Disabling)
  Sender: FDA-Public Use
  Company Number: None

PATIENT
  Age: 71 Year
  Sex: Female
  Weight: 67.05 kg

DRUGS (15)
  1. TURMERIC SUPPLEMENT [Concomitant]
  2. GOLDEN SEAL [Concomitant]
     Active Substance: HERBALS\HOMEOPATHICS\GOLDENSEAL
  3. GARLIC EXTRACT [Concomitant]
     Active Substance: GARLIC
  4. POTASSIUM GLUCONATE [Concomitant]
     Active Substance: POTASSIUM GLUCONATE
  5. BENADRYL [Concomitant]
     Active Substance: DIPHENHYDRAMINE HYDROCHLORIDE
  6. VITAMIN D3 [Concomitant]
     Active Substance: CHOLECALCIFEROL
  7. NIACIN. [Concomitant]
     Active Substance: NIACIN
  8. GINKO BILOBA [Concomitant]
     Active Substance: GINKGO
  9. TRESIBA [Suspect]
     Active Substance: INSULIN DEGLUDEC
     Indication: TYPE 1 DIABETES MELLITUS
     Dosage: ?          OTHER STRENGTH:UNITS/ML;QUANTITY:12 UNITS;?
     Route: 058
     Dates: start: 20200402, end: 20200413
  10. CAYENNE SUPPLEMENT [Concomitant]
  11. COQ10 [Concomitant]
     Active Substance: UBIDECARENONE
  12. FISH OIL [Concomitant]
     Active Substance: FISH OIL
  13. IRON [Concomitant]
     Active Substance: IRON
  14. B6 [Concomitant]
     Active Substance: PYRIDOXINE HYDROCHLORIDE
  15. LEVOTHYROXINE 125 MCG [Concomitant]
     Active Substance: LEVOTHYROXINE SODIUM

REACTIONS (8)
  - Blood glucose decreased [None]
  - Insurance issue [None]
  - Loss of consciousness [None]
  - Encephalopathy [None]
  - Post concussion syndrome [None]
  - Therapy change [None]
  - Gait disturbance [None]
  - Head injury [None]

NARRATIVE: CASE EVENT DATE: 20200402
